FAERS Safety Report 4449338-2 (Version None)
Quarter: 2004Q3

REPORT INFORMATION
  Report Type: 
  Country: None (occurrence: None)
  Receive Date: 20040910
  Receipt Date: 20040831
  Transmission Date: 20050211
  Serious: Yes (Hospitalization)
  Sender: FDA-Public Use
  Company Number: 2004229843US

PATIENT
  Age: 67 Year
  Sex: Female
  Weight: 61.7 kg

DRUGS (3)
  1. CAMPTOSAR [Suspect]
     Indication: SMALL CELL LUNG CANCER LIMITED STAGE
     Dosage: 86 MG, CYCLE 1, IV
     Route: 042
     Dates: start: 20040804, end: 20040812
  2. CISPLATIN [Suspect]
     Indication: SMALL CELL LUNG CANCER LIMITED STAGE
     Dates: start: 20040804
  3. CLINICAL TRIAL PROCEDURE (CLINICAL TRIAL PROCEDURE) [Suspect]
     Indication: SMALL CELL LUNG CANCER LIMITED STAGE
     Dosage: BID
     Dates: start: 20040804

REACTIONS (9)
  - DEHYDRATION [None]
  - DYSPHAGIA [None]
  - FATIGUE [None]
  - INFLAMMATION [None]
  - MACROCYTOSIS [None]
  - NEUTROPENIA [None]
  - ODYNOPHAGIA [None]
  - OESOPHAGEAL ULCER [None]
  - OESOPHAGITIS [None]
